FAERS Safety Report 21006130 (Version 4)
Quarter: 2022Q3

REPORT INFORMATION
  Report Type: Spontaneous
  Country: JP (occurrence: JP)
  Receive Date: 20220624
  Receipt Date: 20220921
  Transmission Date: 20221026
  Serious: Yes (Other)
  Sender: FDA-Public Use
  Company Number: JP-Eisai-202200843_LEN-EC_P_1

PATIENT
  Age: 73 Year
  Sex: Female

DRUGS (5)
  1. LENVIMA [Suspect]
     Active Substance: LENVATINIB
     Indication: Endometrial cancer
     Route: 048
     Dates: start: 20220304, end: 20220412
  2. LENVIMA [Suspect]
     Active Substance: LENVATINIB
     Route: 048
     Dates: start: 2022
  3. KEYTRUDA [Suspect]
     Active Substance: PEMBROLIZUMAB
     Indication: Endometrial cancer
     Route: 041
     Dates: start: 20220304, end: 2022
  4. KEYTRUDA [Suspect]
     Active Substance: PEMBROLIZUMAB
     Dosage: DOSE AND FREQUENCY UNKNOWN
     Route: 041
     Dates: start: 2022, end: 20220830
  5. CARBIMAZOLE [Suspect]
     Active Substance: CARBIMAZOLE
     Indication: Hyperthyroidism
     Dosage: DOSE AND FREQUENCY UNKNOWN
     Route: 048
     Dates: start: 202204, end: 2022

REACTIONS (7)
  - Drug-induced liver injury [Recovering/Resolving]
  - Polymyalgia rheumatica [Recovered/Resolved]
  - Hyperthyroidism [Recovering/Resolving]
  - Palpitations [Unknown]
  - Hypothyroidism [Unknown]
  - Stomatitis [Recovered/Resolved]
  - Decreased appetite [Recovered/Resolved]

NARRATIVE: CASE EVENT DATE: 20220317
